FAERS Safety Report 5081670-4 (Version None)
Quarter: 2006Q3

REPORT INFORMATION
  Report Type: 
  Country: None (occurrence: None)
  Receive Date: 20060816
  Receipt Date: 20060811
  Transmission Date: 20061208
  Serious: Yes (Hospitalization)
  Sender: FDA-Public Use
  Company Number: US-SANOFI-SYNTHELABO-F01200601820

PATIENT
  Sex: Male

DRUGS (4)
  1. AVASTIN [Suspect]
     Route: 042
  2. LEUCOVORIN CALCIUM [Suspect]
     Route: 042
  3. FLUOROURACIL [Suspect]
     Dosage: 400 MG/M2 IV BOLUS AND 2400 MG/M2 IV CONTINUOUS INFUSION FOR 46 HOURS, Q2W
     Route: 042
  4. ELOXATIN [Suspect]
     Indication: COLON CANCER STAGE III
     Route: 042

REACTIONS (4)
  - ATRIAL FIBRILLATION [None]
  - CORONARY ARTERY STENOSIS [None]
  - EXCORIATION [None]
  - SYNCOPE [None]
